FAERS Safety Report 4576059-8 (Version None)
Quarter: 2005Q1

REPORT INFORMATION
  Report Type: 
  Country: None (occurrence: None)
  Receive Date: 20050201
  Receipt Date: 20050201
  Transmission Date: 20050727
  Serious: Yes (Hospitalization)
  Sender: FDA-Public Use
  Company Number: None

PATIENT
  Age: 38 Year
  Sex: Female
  Weight: 40 kg

DRUGS (1)
  1. SEROQUEL [Suspect]

REACTIONS (1)
  - HEPATIC FAILURE [None]
